FAERS Safety Report 5895617-1 (Version None)
Quarter: 2008Q3

REPORT INFORMATION
  Report Type: 
  Country: None (occurrence: None)
  Receive Date: 20080924
  Receipt Date: 20070719
  Transmission Date: 20090109
  Serious: Yes (Other)
  Sender: FDA-Public Use
  Company Number: US-ASTRAZENECA-2006UW20476

PATIENT
  Age: 17469 Day
  Sex: Female
  Weight: 75.7 kg

DRUGS (18)
  1. SEROQUEL [Suspect]
     Indication: BIPOLAR DISORDER
     Route: 048
     Dates: start: 20031027
  2. SEROQUEL [Suspect]
     Indication: DEPRESSION
     Route: 048
     Dates: start: 20031027
  3. SEROQUEL [Suspect]
     Route: 048
     Dates: start: 20031124, end: 20041101
  4. SEROQUEL [Suspect]
     Route: 048
     Dates: start: 20031124, end: 20041101
  5. SEROQUEL [Suspect]
     Route: 048
     Dates: start: 20031124, end: 20041101
  6. SEROQUEL [Suspect]
     Route: 048
     Dates: start: 20031124, end: 20041101
  7. SEROQUEL [Suspect]
     Route: 048
     Dates: start: 20031124, end: 20041101
  8. SEROQUEL [Suspect]
     Route: 048
     Dates: start: 20031124, end: 20041101
  9. ABILIFY [Concomitant]
  10. CLOZARIL [Concomitant]
  11. HALDOL [Concomitant]
     Dates: start: 20070301
  12. RISPERDAL [Concomitant]
  13. MIRTAZAPINE [Concomitant]
     Dosage: 45 MG/15 MG
  14. EFFEXOR [Concomitant]
  15. XANAX [Concomitant]
     Dates: start: 20070401
  16. TRAZODONE HCL [Concomitant]
     Dates: start: 19970101
  17. KLONOPIN [Concomitant]
  18. VALIUM [Concomitant]

REACTIONS (3)
  - BLOOD CHOLESTEROL INCREASED [None]
  - SUICIDE ATTEMPT [None]
  - TYPE 2 DIABETES MELLITUS [None]
